FAERS Safety Report 20427791 (Version 4)
Quarter: 2023Q4

REPORT INFORMATION
  Report Type: Other
  Country: DE (occurrence: None)
  Receive Date: 20220204
  Receipt Date: 20231011
  Transmission Date: 20240110
  Serious: Yes (Hospitalization, Congenital Anomaly, Other)
  Sender: FDA-Public Use
  Company Number: DE-ROCHE-2712784

PATIENT
  Age: 0 Year
  Sex: Male
  Weight: 5.22 kg

DRUGS (6)
  1. OCRELIZUMAB [Suspect]
     Active Substance: OCRELIZUMAB
     Indication: Product used for unknown indication
     Dosage: PATIENT^S MOTHER DOSE WAS 300 MG 06/DEC/2019?SECOND ADMINISTRATION WAS ON 12/NOV/2020 600 MG
     Route: 064
     Dates: start: 20191206
  2. HEPATITIS B VIRUS VACCINE [Concomitant]
     Active Substance: HEPATITIS B VIRUS VACCINE
     Dates: start: 20201217, end: 20201217
  3. PCV-13 [Concomitant]
     Dates: start: 20201217, end: 20201217
  4. POLIOMYELITIS VACCINE NOS [Concomitant]
     Active Substance: POLIOMYELITIS VACCINE
     Dates: start: 20201217, end: 20201217
  5. HAEMOPHILUS INFLUENZAE TYPE B [Concomitant]
     Active Substance: HAEMOPHILUS INFLUENZAE TYPE B
  6. DIPHTHERIA AND TETANUS TOXOIDS AND ACELLULAR PERTUSSIS VACCINE ADSORBE [Concomitant]
     Active Substance: DIPHTHERIA AND TETANUS TOXOIDS AND ACELLULAR PERTUSSIS VACCINE ADSORBED

REACTIONS (4)
  - Pyelocaliectasis [Recovered/Resolved]
  - B-lymphocyte count decreased [Recovered/Resolved]
  - Anal abscess [Recovered/Resolved]
  - Foetal exposure during pregnancy [Unknown]

NARRATIVE: CASE EVENT DATE: 20201007
